FAERS Safety Report 9853236 (Version 1)
Quarter: 2014Q1

REPORT INFORMATION
  Report Type: Spontaneous
  Country: ES (occurrence: None)
  Receive Date: 20140127
  Receipt Date: 20140127
  Transmission Date: 20141002
  Serious: Yes (Life-Threatening, Hospitalization)
  Sender: FDA-Public Use
  Company Number: 2014ES002978

PATIENT
  Age: 41 Year
  Sex: Female

DRUGS (6)
  1. ICLUSIG (PONATINIB) TABLET, 45MG [Suspect]
     Indication: CHRONIC MYELOID LEUKAEMIA
     Route: 048
     Dates: start: 20130124, end: 20131120
  2. SERTRALINE (SERTRALINE HYDROCHLORIDE) [Concomitant]
  3. ACYCLOVIR (ACYCLOVIR) [Concomitant]
  4. FLUCONAZOLE (FLUCONAZOLE) [Concomitant]
  5. SANDIMMUN NEORAL (CICLOSPORIN) CAPSULE [Concomitant]
  6. SEPTRIN (SULFAMETHOXAZOLE, TRIMETHOPRIN) [Concomitant]

REACTIONS (1)
  - Acute myocardial infarction [None]
